FAERS Safety Report 4564912-0 (Version None)
Quarter: 2005Q1

REPORT INFORMATION
  Report Type: 
  Country: None (occurrence: None)
  Receive Date: 20050126
  Receipt Date: 20050113
  Transmission Date: 20050727
  Serious: Yes (Death)
  Sender: FDA-Public Use
  Company Number: 2004118865

PATIENT
  Age: 84 Year
  Sex: Female

DRUGS (3)
  1. CELEBREX [Suspect]
     Indication: BACK PAIN
     Dosage: 200 MG (200 MG, 3 IN 1 D), ORAL
     Route: 048
  2. CAPTOPRIL [Concomitant]
  3. AMINOPHYLLIN [Concomitant]

REACTIONS (2)
  - MYOCARDIAL INFARCTION [None]
  - RESPIRATORY DISORDER [None]
